FAERS Safety Report 7055863-0 (Version None)
Quarter: 2010Q4

REPORT INFORMATION
  Report Type: 
  Country: None (occurrence: None)
  Receive Date: 20101021
  Receipt Date: 20101011
  Transmission Date: 20110411
  Serious: Yes (Other)
  Sender: FDA-Public Use
  Company Number: US-MERCK-1010USA02361

PATIENT
  Age: 60 Year
  Sex: Female
  Weight: 95 kg

DRUGS (12)
  1. MEVACOR [Suspect]
     Route: 048
  2. ZESTORETIC [Suspect]
     Route: 048
  3. LASIX [Suspect]
     Indication: FLUID RETENTION
     Route: 048
  4. LYRICA [Suspect]
     Indication: NEURALGIA
     Route: 048
     Dates: start: 20100801
  5. LYRICA [Suspect]
     Route: 048
  6. PREDNISONE [Suspect]
     Indication: POLYMYALGIA RHEUMATICA
     Route: 048
     Dates: start: 20070101
  7. PREDNISONE [Suspect]
     Route: 048
     Dates: start: 20070101
  8. PEXEVA [Suspect]
     Indication: FATIGUE
     Route: 048
  9. PEXEVA [Suspect]
     Indication: ASTHENIA
     Route: 048
  10. FOSAMAX [Suspect]
     Indication: CALCIUM DEFICIENCY
     Route: 048
  11. SYNTHROID [Suspect]
     Indication: HYPOTHYROIDISM
     Dosage: 137 MCG TWO TABLETS FOR TWO DAYS AND HALF TABLET FOR NEXT FIVE DAYS IN A WEEK
     Route: 048
  12. REQUIP [Suspect]
     Route: 048

REACTIONS (7)
  - ACTIVITIES OF DAILY LIVING IMPAIRED [None]
  - DIZZINESS [None]
  - DYSKINESIA [None]
  - FEAR [None]
  - SYSTEMIC LUPUS ERYTHEMATOSUS [None]
  - THINKING ABNORMAL [None]
  - TREMOR [None]
